FAERS Safety Report 7171016-X (Version None)
Quarter: 2010Q4

REPORT INFORMATION
  Report Type: 
  Country: None (occurrence: None)
  Receive Date: 20101217
  Receipt Date: 20101207
  Transmission Date: 20110411
  Serious: Yes (Hospitalization, Other)
  Sender: FDA-Public Use
  Company Number: AU-JNJFOC-20101203775

PATIENT
  Sex: Female

DRUGS (13)
  1. SIMPONI [Suspect]
     Indication: PRODUCT USED FOR UNKNOWN INDICATION
     Route: 058
  2. CORTISONE ACETATE [Concomitant]
  3. CELEBREX [Concomitant]
  4. METHOTREXATE [Concomitant]
  5. LIPITOR [Concomitant]
  6. LEVOTHYROXINE SODIUM [Concomitant]
  7. FOLIC ACID [Concomitant]
  8. GLUCOSAMINE [Concomitant]
  9. CALCIUM [Concomitant]
  10. VITAMIN A [Concomitant]
  11. ALPRIM [Concomitant]
     Indication: PROPHYLAXIS
  12. HORMONE CREAM [Concomitant]
     Indication: POSTMENOPAUSE
  13. MACU-VISION [Concomitant]

REACTIONS (4)
  - ASTHMA [None]
  - BLOOD URINE PRESENT [None]
  - PNEUMONIA [None]
  - WEIGHT DECREASED [None]
